FAERS Safety Report 14285684 (Version 7)
Quarter: 2021Q2

REPORT INFORMATION
  Report Type: Report from Study
  Country: FR (occurrence: FR)
  Receive Date: 20171214
  Receipt Date: 20210630
  Transmission Date: 20210716
  Serious: Yes (Other)
  Sender: FDA-Public Use
  Company Number: FR-ROCHE-2038126

PATIENT
  Age: 75 Year
  Sex: Male

DRUGS (12)
  1. TAMSULOSINE [Concomitant]
     Active Substance: TAMSULOSIN HYDROCHLORIDE
  2. GLICLAZIDE [Concomitant]
     Active Substance: GLICLAZIDE
  3. LENALIDOMIDE [Suspect]
     Active Substance: LENALIDOMIDE
     Indication: MANTLE CELL LYMPHOMA
     Dosage: LAST DOSE BEFORE SAE: 22/FEB/2016?3 WEEKS EVERY 4 WEEKS FOR 24 MONTHS
     Route: 065
     Dates: start: 20150722
  4. CYCLOPHOSPHAMIDE. [Suspect]
     Active Substance: CYCLOPHOSPHAMIDE
     Indication: MANTLE CELL LYMPHOMA
     Dosage: ADMINISTERED IN 3 WEEK CYCLES FOR 8 CYCLES
     Route: 065
     Dates: start: 20141218, end: 20150420
  5. VINCRISTINE [Suspect]
     Active Substance: VINCRISTINE
     Indication: MANTLE CELL LYMPHOMA
     Dosage: ADMINISTERED IN 3 WEEK CYCLES FOR 8 CYCLES
     Route: 065
     Dates: start: 20141218, end: 20150420
  6. RITUXIMAB. [Suspect]
     Active Substance: RITUXIMAB
     Indication: MANTLE CELL LYMPHOMA
     Dosage: ADMINISTERED IN 3 WEEK CYCLES FOR 8 CYCLES
     Route: 042
     Dates: start: 20141218
  7. DOXORUBICIN [Suspect]
     Active Substance: DOXORUBICIN
     Indication: MANTLE CELL LYMPHOMA
     Dosage: ADMINISTERED IN 3 WEEK CYCLES FOR 8 CYCLES
     Route: 065
     Dates: start: 20141218, end: 20150420
  8. PREDNISONE. [Suspect]
     Active Substance: PREDNISONE
     Indication: MANTLE CELL LYMPHOMA
     Dosage: ADMINISTERED IN 3 WEEK CYCLES FOR 8 CYCLES
     Route: 065
     Dates: start: 20141218, end: 20150420
  9. BRINZOLAMIDE [Concomitant]
     Active Substance: BRINZOLAMIDE
  10. BIMATOPROST. [Concomitant]
     Active Substance: BIMATOPROST
  11. RITUXIMAB. [Suspect]
     Active Substance: RITUXIMAB
     Indication: MANTLE CELL LYMPHOMA
     Dosage: LAST DOSE BEFORE SAE: 31/JAN/2017?EVERY 8 WEEKS FOR 24 MONTHS
     Route: 058
     Dates: start: 20151109
  12. TELMISARTAN. [Concomitant]
     Active Substance: TELMISARTAN

REACTIONS (3)
  - Squamous cell carcinoma of head and neck [Unknown]
  - Squamous cell carcinoma [Recovered/Resolved]
  - Bacterial colitis [Unknown]

NARRATIVE: CASE EVENT DATE: 20150209
